FAERS Safety Report 8240162-1 (Version None)
Quarter: 2012Q1

REPORT INFORMATION
  Report Type: 
  Country: None (occurrence: None)
  Receive Date: 20120328
  Receipt Date: 20120321
  Transmission Date: 20120608
  Serious: Yes (Other)
  Sender: FDA-Public Use
  Company Number: CN-PFIZER INC-2012074032

PATIENT
  Age: 14 Year
  Sex: Male

DRUGS (4)
  1. METHOTREXATE [Suspect]
     Indication: ACUTE LEUKAEMIA
     Dosage: 10 MG, UNK
     Route: 037
  2. CYTARABINE [Suspect]
     Indication: ACUTE LEUKAEMIA
  3. ADRIAMYCIN PFS [Concomitant]
     Indication: ACUTE LEUKAEMIA
  4. DEXAMETHASONE [Concomitant]
     Indication: ACUTE LEUKAEMIA
     Dosage: 5 MG, UNK
     Route: 037

REACTIONS (4)
  - ACUTE PULMONARY OEDEMA [None]
  - URINE OUTPUT DECREASED [None]
  - SPINAL CORD INJURY [None]
  - AUTONOMIC NERVOUS SYSTEM IMBALANCE [None]
